FAERS Safety Report 7799247-6 (Version None)
Quarter: 2011Q4

REPORT INFORMATION
  Report Type: 
  Country: None (occurrence: None)
  Receive Date: 20111006
  Receipt Date: 20100902
  Transmission Date: 20120403
  Serious: No
  Sender: FDA-Public Use
  Company Number: US-GLAXOSMITHKLINE-A0879247A

PATIENT
  Age: 19 Year
  Sex: Female

DRUGS (2)
  1. DIFFERIN [Concomitant]
  2. DUAC [Suspect]
     Indication: ACNE
     Dosage: 1APP PER DAY
     Route: 061
     Dates: start: 20100824, end: 20100901

REACTIONS (3)
  - SKIN EXFOLIATION [None]
  - SKIN BURNING SENSATION [None]
  - DRY SKIN [None]
